FAERS Safety Report 9190222 (Version 1)
Quarter: 2013Q1

REPORT INFORMATION
  Report Type: Spontaneous
  Country: US (occurrence: US)
  Receive Date: 20130326
  Receipt Date: 20130326
  Transmission Date: 20140127
  Serious: Yes (Other)
  Sender: FDA-Public Use
  Company Number: PHEH2013US006741

PATIENT
  Sex: Male

DRUGS (11)
  1. DIOVAN HCT [Suspect]
     Dosage: 1 DF, (160/12.5 MG) QD
     Dates: start: 2010
  2. KLONOPIN [Concomitant]
     Dosage: UNK UKN, UNK
  3. VYVANSE [Concomitant]
     Dosage: UNK UKN, UNK
  4. NOVOLOG [Concomitant]
     Dosage: UNK UKN, UNK
  5. METFORMIN [Concomitant]
     Dosage: UNK UKN, UNK
  6. ENBREL [Concomitant]
     Dosage: UNK UKN, UNK
  7. METORPOLOLTARTRAAT A [Concomitant]
     Dosage: UNK UKN, UNK
  8. PLAVIX [Concomitant]
     Dosage: UNK UKN, UNK
  9. ASPIRIN [Concomitant]
     Dosage: UNK UKN, UNK
  10. OXYCODONE [Concomitant]
     Dosage: UNK UKN, UNK
  11. LIPITOR [Concomitant]
     Dosage: UNK UKN, UNK

REACTIONS (1)
  - Tonsil cancer [Unknown]
